FAERS Safety Report 10150030 (Version 2)
Quarter: 2014Q2

REPORT INFORMATION
  Report Type: Spontaneous
  Country: US (occurrence: US)
  Receive Date: 20140502
  Receipt Date: 20140514
  Transmission Date: 20141212
  Serious: Yes (Other)
  Sender: FDA-Public Use
  Company Number: US-009507513-1404USA015512

PATIENT
  Sex: Female

DRUGS (1)
  1. IMPLANON [Suspect]
     Indication: CONTRACEPTION
     Dosage: UNK, INSERTED INTO ARM
     Route: 059
     Dates: start: 20120702, end: 20130502

REACTIONS (11)
  - Cerebrovascular accident [Unknown]
  - Hypoaesthesia [Not Recovered/Not Resolved]
  - Nerve injury [Not Recovered/Not Resolved]
  - Movement disorder [Unknown]
  - Pain in extremity [Unknown]
  - Implant site pain [Unknown]
  - Major depression [Unknown]
  - Muscular weakness [Unknown]
  - Asthenia [Unknown]
  - Smear cervix abnormal [Unknown]
  - Dyspnoea [Unknown]
